FAERS Safety Report 5932350-1 (Version None)
Quarter: 2008Q4

REPORT INFORMATION
  Report Type: 
  Country: None (occurrence: None)
  Receive Date: 20081027
  Receipt Date: 20081027
  Transmission Date: 20090506
  Serious: Yes (Life-Threatening)
  Sender: FDA-Public Use
  Company Number: None

PATIENT
  Age: 22 Year
  Sex: Female
  Weight: 54.4316 kg

DRUGS (1)
  1. BENADRYL [Suspect]
     Dosage: 25MG JUST ONCE ON IM
     Route: 030

REACTIONS (3)
  - ARRHYTHMIA [None]
  - DIZZINESS [None]
  - FEELING ABNORMAL [None]
